FAERS Safety Report 7371445-5 (Version None)
Quarter: 2011Q1

REPORT INFORMATION
  Report Type: 
  Country: None (occurrence: None)
  Receive Date: 20110324
  Receipt Date: 20110318
  Transmission Date: 20110831
  Serious: Yes (Life-Threatening, Hospitalization)
  Sender: FDA-Public Use
  Company Number: US-BRISTOL-MYERS SQUIBB COMPANY-15415458

PATIENT
  Age: 79 Year
  Sex: Male
  Weight: 68 kg

DRUGS (8)
  1. ATIVAN [Concomitant]
     Dates: start: 20100930
  2. ASPIRIN [Concomitant]
  3. PLATELETS [Concomitant]
     Dates: start: 20101111, end: 20101111
  4. FLOMAX [Concomitant]
     Dates: start: 20090407
  5. PROTONIX [Concomitant]
     Dates: start: 20100908
  6. CISPLATIN [Suspect]
     Indication: SARCOMA
     Dosage: LAST DOSE:28OCT10; END OF THERAPY VISIT ON 09DEC2010.30SEP2010-28OCT2010(29 DAYS).
     Route: 042
     Dates: start: 20100930, end: 20101209
  7. COMPAZINE [Concomitant]
     Dates: start: 20100930
  8. IMODIUM [Concomitant]
     Dates: start: 20101007

REACTIONS (6)
  - THROMBOCYTOPENIA [None]
  - ATRIAL FIBRILLATION [None]
  - FEBRILE NEUTROPENIA [None]
  - HERPES ZOSTER [None]
  - SEPTIC SHOCK [None]
  - VENTRICULAR TACHYCARDIA [None]
